FAERS Safety Report 25606808 (Version 4)
Quarter: 2025Q3

REPORT INFORMATION
  Report Type: Spontaneous
  Country: PR (occurrence: PR)
  Receive Date: 20250725
  Receipt Date: 20250827
  Transmission Date: 20251021
  Serious: No
  Sender: PFIZER
  Company Number: PR-PFIZER INC-202500148455

PATIENT
  Age: 15 Year
  Sex: Male

DRUGS (2)
  1. GENOTROPIN [Suspect]
     Active Substance: SOMATROPIN
  2. GENOTROPIN [Suspect]
     Active Substance: SOMATROPIN
     Dates: start: 202412

REACTIONS (3)
  - Device information output issue [Unknown]
  - Device physical property issue [Unknown]
  - Drug dose omission by device [Unknown]

NARRATIVE: CASE EVENT DATE: 20250718
